FAERS Safety Report 16836037 (Version 1)
Quarter: 2019Q3

REPORT INFORMATION
  Report Type: Report from Study
  Country: FR (occurrence: FR)
  Receive Date: 20190920
  Receipt Date: 20190920
  Transmission Date: 20191005
  Serious: Yes (Death, Hospitalization, Other)
  Sender: FDA-Public Use
  Company Number: FR-TAKEDA-2019TUS053126

PATIENT
  Sex: Male
  Weight: 81 kg

DRUGS (1)
  1. IXAZOMIB [Suspect]
     Active Substance: IXAZOMIB
     Indication: PLASMA CELL MYELOMA
     Dosage: UNK
     Route: 065
     Dates: end: 20190212

REACTIONS (15)
  - Toxic encephalopathy [Recovering/Resolving]
  - Asthenia [Unknown]
  - Cough [Unknown]
  - Lung disorder [Unknown]
  - Acute kidney injury [Fatal]
  - Febrile bone marrow aplasia [Unknown]
  - Pancytopenia [Unknown]
  - Cardiac failure [Unknown]
  - Thrombocytopenia [Not Recovered/Not Resolved]
  - Respiratory distress [Unknown]
  - Dyspnoea [Unknown]
  - Night sweats [Unknown]
  - Atrial flutter [Unknown]
  - General physical health deterioration [Unknown]
  - Pyrexia [Unknown]

NARRATIVE: CASE EVENT DATE: 20190115
